FAERS Safety Report 4422458-4 (Version None)
Quarter: 2004Q3

REPORT INFORMATION
  Report Type: 
  Country: None (occurrence: None)
  Receive Date: 20040806
  Receipt Date: 20040716
  Transmission Date: 20050211
  Serious: Yes (Other)
  Sender: FDA-Public Use
  Company Number: USA040772842

PATIENT
  Age: 70 Year
  Sex: Male

DRUGS (8)
  1. FORTEO [Suspect]
     Indication: FRACTURE
     Dosage: UNK
     Route: 065
     Dates: start: 20040701
  2. AMIODARONE HCL [Concomitant]
  3. CARTIA XT [Concomitant]
  4. OMEPRAZOLE [Concomitant]
  5. VIOXX [Concomitant]
  6. MULTIVITAMIN [Concomitant]
  7. ANTIBIOTICS [Concomitant]
  8. OXYGEN [Concomitant]

REACTIONS (2)
  - DYSPHONIA [None]
  - SPINAL CORD NEOPLASM [None]
